FAERS Safety Report 10729593 (Version 1)
Quarter: 2015Q1

REPORT INFORMATION
  Report Type: Spontaneous
  Country: US (occurrence: None)
  Receive Date: 20150121
  Receipt Date: 20150121
  Transmission Date: 20150721
  Serious: No
  Sender: FDA-Public Use
  Company Number: None

PATIENT
  Age: 69 Year
  Sex: Female

DRUGS (1)
  1. AFINITOR [Suspect]
     Active Substance: EVEROLIMUS
     Indication: BREAST CANCER
     Route: 048
     Dates: start: 20150109, end: 20150115

REACTIONS (5)
  - Hepatic function abnormal [None]
  - Acne [None]
  - Blister [None]
  - Decreased appetite [None]
  - Rash [None]

NARRATIVE: CASE EVENT DATE: 201501
